FAERS Safety Report 13454549 (Version 1)
Quarter: 2017Q2

REPORT INFORMATION
  Report Type: Spontaneous
  Country: US (occurrence: US)
  Receive Date: 20170418
  Receipt Date: 20170418
  Transmission Date: 20170830
  Serious: Yes (Death)
  Sender: FDA-Public Use
  Company Number: None

PATIENT
  Age: 77 Year
  Sex: Male

DRUGS (1)
  1. LUPRON DEPOT [Suspect]
     Active Substance: LEUPROLIDE ACETATE
     Indication: PROSTATE CANCER
     Dosage: 30MG EVERY 4 MONTHS IN THE MUSCLE
     Route: 030
     Dates: start: 20160630, end: 20170417

REACTIONS (1)
  - Death [None]

NARRATIVE: CASE EVENT DATE: 20170417
